FAERS Safety Report 9991505 (Version 4)
Quarter: 2015Q1

REPORT INFORMATION
  Report Type: Spontaneous
  Country: US (occurrence: US)
  Receive Date: 20140310
  Receipt Date: 20150311
  Transmission Date: 20150721
  Serious: Yes (Hospitalization, Other)
  Sender: FDA-Public Use
  Company Number: US-BAYER-2014-033188

PATIENT
  Age: 22 Year
  Sex: Female
  Weight: 53.52 kg

DRUGS (5)
  1. MOTRIN CHILDREN^S [Concomitant]
     Dosage: 100MG/5 ML - 30 ML EVERY 6 HOURS PRN
     Dates: start: 20110822
  2. ALBUTEROL. [Concomitant]
     Active Substance: ALBUTEROL
     Dosage: 90 MCGM, 2 PUFFS Q4H PRN
     Route: 045
  3. FOLIC ACID. [Concomitant]
     Active Substance: FOLIC ACID
     Dosage: 400 MCG, QD
  4. ACYCLOVIR [ACICLOVIR] [Concomitant]
     Active Substance: ACYCLOVIR
     Dosage: 400 MG, BID
  5. MIRENA [Suspect]
     Active Substance: LEVONORGESTREL
     Indication: CONTRACEPTION
     Dosage: 20 MCG/24HR, CONT
     Route: 015
     Dates: start: 20110103, end: 20110913

REACTIONS (9)
  - Abdominal pain lower [None]
  - Device difficult to use [None]
  - Emotional distress [None]
  - Pelvic discomfort [None]
  - Device issue [None]
  - Genital haemorrhage [None]
  - Uterine perforation [None]
  - Injury [None]
  - Pelvic adhesions [None]

NARRATIVE: CASE EVENT DATE: 2011
